FAERS Safety Report 11233450 (Version 2)
Quarter: 2015Q3

REPORT INFORMATION
  Report Type: Spontaneous
  Country: GB (occurrence: GB)
  Receive Date: 20150702
  Receipt Date: 20150907
  Transmission Date: 20151125
  Serious: Yes (Hospitalization, Other)
  Sender: FDA-Public Use
  Company Number: GB-ROCHE-1601319

PATIENT
  Sex: Female

DRUGS (1)
  1. HERCEPTIN [Suspect]
     Active Substance: TRASTUZUMAB
     Indication: PRODUCT USED FOR UNKNOWN INDICATION
     Route: 058

REACTIONS (16)
  - Metastasis [Unknown]
  - Fatigue [Unknown]
  - Nausea [Unknown]
  - Insomnia [Not Recovered/Not Resolved]
  - Oesophageal neoplasm [Unknown]
  - Decreased appetite [Unknown]
  - Chest discomfort [Not Recovered/Not Resolved]
  - Influenza like illness [Recovering/Resolving]
  - Dysphagia [Recovering/Resolving]
  - Asthenia [Unknown]
  - Restless legs syndrome [Unknown]
  - Constipation [Unknown]
  - Weight decreased [Unknown]
  - Peroneal nerve palsy [Not Recovered/Not Resolved]
  - Diarrhoea [Unknown]
  - Oesophageal carcinoma [Unknown]
